FAERS Safety Report 18654106 (Version 5)
Quarter: 2022Q3

REPORT INFORMATION
  Report Type: Other
  Country: US (occurrence: None)
  Receive Date: 20201223
  Receipt Date: 20220928
  Transmission Date: 20221027
  Serious: Yes (Hospitalization)
  Sender: FDA-Public Use
  Company Number: US-ROCHE-2737038

PATIENT
  Sex: Female
  Weight: 60.836 kg

DRUGS (9)
  1. OCREVUS [Suspect]
     Active Substance: OCRELIZUMAB
     Indication: Relapsing-remitting multiple sclerosis
     Dosage: DATE OF TREATMENT: 12/JUL/2019, 13/JUN/2019, 09/DEC/2019, 15/JUN/2020,15/FEB/2022,01/JUN/2020,03/MAR
     Route: 042
     Dates: start: 20190613
  2. OCREVUS [Suspect]
     Active Substance: OCRELIZUMAB
     Route: 042
     Dates: start: 201906, end: 20200615
  3. LEVOTHYROXINE [Concomitant]
     Active Substance: LEVOTHYROXINE
  4. BACLOFEN [Concomitant]
     Active Substance: BACLOFEN
  5. ELIQUIS [Concomitant]
     Active Substance: APIXABAN
  6. RANITIDINE HYDROCHLORIDE [Concomitant]
     Active Substance: RANITIDINE HYDROCHLORIDE
  7. REQUIP [Concomitant]
     Active Substance: ROPINIROLE HYDROCHLORIDE
  8. TRAZODONE [Concomitant]
     Active Substance: TRAZODONE HYDROCHLORIDE
  9. NORTRIPTYLINE [Concomitant]
     Active Substance: NORTRIPTYLINE

REACTIONS (4)
  - Urinary tract infection [Not Recovered/Not Resolved]
  - Skin ulcer [Not Recovered/Not Resolved]
  - Off label use [Unknown]
  - Wound complication [Not Recovered/Not Resolved]
